FAERS Safety Report 14935365 (Version 1)
Quarter: 2018Q2

REPORT INFORMATION
  Report Type: Spontaneous
  Country: US (occurrence: US)
  Receive Date: 20180507
  Receipt Date: 20180507
  Transmission Date: 20180711
  Serious: Yes (Other)
  Sender: FDA-Public Use
  Company Number: None

PATIENT
  Age: 54 Year
  Sex: Male
  Weight: 73.48 kg

DRUGS (2)
  1. AMBIEN [Suspect]
     Active Substance: ZOLPIDEM TARTRATE
  2. ZOLPIDEM TARTRATE. [Suspect]
     Active Substance: ZOLPIDEM TARTRATE

REACTIONS (1)
  - Drug ineffective [None]
